FAERS Safety Report 23349518 (Version 3)
Quarter: 2024Q1

REPORT INFORMATION
  Report Type: Spontaneous
  Country: US (occurrence: US)
  Receive Date: 20231229
  Receipt Date: 20240328
  Transmission Date: 20240410
  Serious: Yes (Other)
  Sender: FDA-Public Use
  Company Number: US-GSKCCFUS-Case-00919337_AE-54143

PATIENT

DRUGS (3)
  1. NUCALA [Suspect]
     Active Substance: MEPOLIZUMAB
     Indication: Asthma
     Dosage: 100 MG/ML 1X1ML
  2. NUCALA [Suspect]
     Active Substance: MEPOLIZUMAB
     Indication: Asthma
     Dosage: UNK
  3. NUCALA [Suspect]
     Active Substance: MEPOLIZUMAB

REACTIONS (7)
  - Limb operation [Not Recovered/Not Resolved]
  - Exposure via skin contact [Unknown]
  - Post procedural complication [Not Recovered/Not Resolved]
  - Wrong technique in device usage process [Unknown]
  - Accidental exposure to product [Unknown]
  - Product complaint [Unknown]
  - Therapeutic product effect incomplete [Unknown]

NARRATIVE: CASE EVENT DATE: 20200101
